FAERS Safety Report 4480968-8 (Version None)
Quarter: 2004Q4

REPORT INFORMATION
  Report Type: 
  Country: None (occurrence: None)
  Receive Date: 20041020
  Receipt Date: 20041020
  Transmission Date: 20050328
  Serious: Yes (Other)
  Sender: FDA-Public Use
  Company Number: None

PATIENT
  Age: 46 Year
  Sex: Male
  Weight: 89.8122 kg

DRUGS (8)
  1. GLYBURIDE AND METFORMIN HCL [Suspect]
     Indication: DIABETES MELLITUS NON-INSULIN-DEPENDENT
     Dosage: 1 TABLET BY MOUTH TWICE A DAILY
     Dates: start: 20040603, end: 20040621
  2. GLYBURIDE AND METFORMIN HCL [Suspect]
     Indication: HYPERGLYCAEMIA
     Dosage: 1 TABLET BY MOUTH TWICE A DAILY
     Dates: start: 20040603, end: 20040621
  3. METOPROLOL TART [Concomitant]
  4. NITROGLYCERIN SL [Concomitant]
  5. ACCUPRIL [Concomitant]
  6. GEMFIBROZIL [Concomitant]
  7. NEXIUM [Concomitant]
  8. LIPITOR [Concomitant]

REACTIONS (3)
  - DIABETES MELLITUS INADEQUATE CONTROL [None]
  - DRUG INEFFECTIVE [None]
  - PHARMACEUTICAL PRODUCT COMPLAINT [None]
